FAERS Safety Report 8815503 (Version 1)
Quarter: 2012Q4

REPORT INFORMATION
  Report Type: 
  Country: CH (occurrence: CH)
  Receive Date: 20120928
  Receipt Date: 20120928
  Transmission Date: 20130627
  Serious: Yes (Hospitalization)
  Sender: FDA-Public Use
  Company Number: CH-GLAXOSMITHKLINE-B0833808A

PATIENT
  Age: 66 Year
  Sex: Male
  Weight: 90 kg

DRUGS (11)
  1. REVOLADE [Suspect]
     Indication: THROMBOCYTOPENIA
     Dosage: 50MG Per day
     Route: 048
     Dates: start: 20120709
  2. PREDNISON [Suspect]
     Indication: THROMBOCYTOPENIA
     Dosage: 50MG Per day
     Route: 048
     Dates: start: 20120628
  3. COSAAR PLUS [Concomitant]
     Indication: ESSENTIAL HYPERTENSION
     Dosage: 1U Per day
     Route: 048
     Dates: start: 2011, end: 201206
  4. ALDACTONE [Concomitant]
     Indication: GENERALISED OEDEMA
     Route: 048
     Dates: start: 2011, end: 201207
  5. TOREM [Concomitant]
     Indication: OEDEMA
     Dosage: 10MG Twice per day
     Route: 048
     Dates: start: 2011
  6. IMMUNOGLOBULIN [Concomitant]
     Indication: THROMBOCYTOPENIA
     Dosage: 35G Per day
     Dates: start: 20120628, end: 20120702
  7. JANUMET [Concomitant]
     Indication: TYPE 1 DIABETES MELLITUS
     Dosage: 2U Twice per day
     Route: 048
     Dates: start: 2011
  8. INSULIN [Concomitant]
     Indication: TYPE 1 DIABETES MELLITUS
     Dates: start: 201207
  9. INDERAL [Concomitant]
     Indication: ESSENTIAL HYPERTENSION
     Dosage: 5MG Three times per day
     Route: 048
     Dates: start: 201207
  10. NEXIUM [Concomitant]
     Indication: DYSPEPSIA
     Dosage: 40MG Per day
     Route: 048
     Dates: start: 201205
  11. SIMCORA [Concomitant]
     Indication: HYPERLIPIDAEMIA
     Dosage: 20MG Per day
     Route: 048
     Dates: start: 2011

REACTIONS (4)
  - Ascites [Recovering/Resolving]
  - Enterobacter bacteraemia [Recovering/Resolving]
  - Hepatic enzyme increased [Recovering/Resolving]
  - Oedema peripheral [Recovering/Resolving]
